FAERS Safety Report 9895517 (Version 1)
Quarter: 2014Q1

REPORT INFORMATION
  Report Type: Spontaneous
  Country: US (occurrence: US)
  Receive Date: 20140213
  Receipt Date: 20140213
  Transmission Date: 20141002
  Serious: No
  Sender: FDA-Public Use
  Company Number: US-009507513-1402USA003079

PATIENT
  Sex: 0

DRUGS (1)
  1. JANUMET [Suspect]
     Dosage: ONE TABLET (50-1000 MG) TWICE DAILY
     Route: 048
     Dates: start: 201301

REACTIONS (1)
  - Nausea [Unknown]
